FAERS Safety Report 23590512 (Version 1)
Quarter: 2024Q1

REPORT INFORMATION
  Report Type: Spontaneous
  Country: CN (occurrence: CN)
  Receive Date: 20240304
  Receipt Date: 20240304
  Transmission Date: 20240410
  Serious: Yes (Hospitalization)
  Sender: FDA-Public Use
  Company Number: CN-JNJFOC-20240272710

PATIENT
  Age: 68 Year
  Sex: Female
  Weight: 51 kg

DRUGS (5)
  1. DARZALEX [Suspect]
     Active Substance: DARATUMUMAB
     Indication: Plasma cell myeloma
     Route: 041
     Dates: start: 20231206, end: 20231206
  2. VRD [Concomitant]
     Indication: Plasma cell myeloma
     Route: 065
  3. RD [DEXAMETHASONE;LENALIDOMIDE] [Concomitant]
     Indication: Plasma cell myeloma
     Route: 065
  4. CD38 (CLUSTERS OF DIFFERENTIATION 38) INHIBITORS [Concomitant]
     Indication: Plasma cell myeloma
     Route: 065
  5. SODIUM CHLORIDE [Concomitant]
     Active Substance: SODIUM CHLORIDE
     Indication: Vehicle solution use
     Route: 041
     Dates: start: 20231206, end: 20231206

REACTIONS (1)
  - Bicytopenia [Recovering/Resolving]

NARRATIVE: CASE EVENT DATE: 20231207
